FAERS Safety Report 8976265 (Version 1)
Quarter: 2012Q4

REPORT INFORMATION
  Report Type: 
  Country: US (occurrence: US)
  Receive Date: 20121219
  Receipt Date: 20121219
  Transmission Date: 20130627
  Serious: No
  Sender: FDA-Public Use
  Company Number: US-AMGEN-USASP2012061315

PATIENT
  Age: 75 Year
  Sex: Female
  Weight: 77.1 kg

DRUGS (14)
  1. PROLIA [Suspect]
     Indication: OSTEOPOROSIS POSTMENOPAUSAL
     Dosage: 60 mg, one time dose
     Route: 058
     Dates: start: 20120907
  2. HYDROCHLOORTHIAZIDE [Concomitant]
     Dosage: UNK
  3. LIPITOR [Concomitant]
     Indication: BLOOD CHOLESTEROL
     Dosage: 2 mg, UNK
     Route: 048
  4. CARDIZEM                           /00489701/ [Concomitant]
     Dosage: UNK
  5. LEVOXYL [Concomitant]
     Dosage: UNK
  6. NEURONTIN [Concomitant]
     Indication: PAIN
     Dosage: UNK UNK, tid
     Route: 048
  7. BACLOFEN [Concomitant]
     Indication: SLEEP DISORDER
     Dosage: 5 mg, UNK
     Route: 048
  8. BACLOFEN [Concomitant]
     Indication: PAIN
  9. ROBAXIN [Concomitant]
     Indication: SLEEP DISORDER
     Dosage: UNK
     Route: 048
     Dates: start: 20120709
  10. ULTRAM [Concomitant]
     Indication: PAIN
     Dosage: UNK
     Route: 048
  11. MAGNESIUM [Concomitant]
     Dosage: UNK
  12. CALCIUM [Concomitant]
     Dosage: UNK
  13. VITAMIN D /00107901/ [Concomitant]
     Dosage: UNK
  14. VITAMIN C                          /00008001/ [Concomitant]
     Dosage: UNK

REACTIONS (3)
  - Myalgia [Recovered/Resolved]
  - Fibromyalgia [Recovering/Resolving]
  - Pain [Recovering/Resolving]
